FAERS Safety Report 24543733 (Version 3)
Quarter: 2025Q1

REPORT INFORMATION
  Report Type: Spontaneous
  Country: US (occurrence: US)
  Receive Date: 20241024
  Receipt Date: 20250124
  Transmission Date: 20250409
  Serious: No
  Sender: ABBVIE
  Company Number: US-ABBVIE-5969268

PATIENT
  Age: 27 Year
  Sex: Female

DRUGS (2)
  1. BOTOX [Suspect]
     Active Substance: ONABOTULINUMTOXINA
     Indication: Product used for unknown indication
     Route: 065
     Dates: start: 202107, end: 202107
  2. BOTOX [Suspect]
     Active Substance: ONABOTULINUMTOXINA
     Indication: Product used for unknown indication
     Route: 065
     Dates: start: 202110, end: 202110

REACTIONS (5)
  - Eye disorder [Not Recovered/Not Resolved]
  - Facial paresis [Not Recovered/Not Resolved]
  - Mephisto sign [Recovered/Resolved]
  - Therapeutic product effect incomplete [Unknown]
  - Muscle atrophy [Unknown]

NARRATIVE: CASE EVENT DATE: 20210101
